FAERS Safety Report 5170410-6 (Version None)
Quarter: 2006Q4

REPORT INFORMATION
  Report Type: 
  Country: None (occurrence: None)
  Receive Date: 20061212
  Receipt Date: 20061201
  Transmission Date: 20070319
  Serious: Yes (Hospitalization)
  Sender: FDA-Public Use
  Company Number: CH-SANOFI-SYNTHELABO-F01200602444

PATIENT
  Sex: Female
  Weight: 70 kg

DRUGS (4)
  1. VOLTAREN [Concomitant]
     Indication: POLYARTHRITIS
     Dosage: UNK
     Dates: start: 20061110, end: 20061112
  2. HEPARIN [Concomitant]
     Indication: CORONARY ARTERY DISEASE
     Dosage: UNK
     Dates: start: 20061106, end: 20061112
  3. ASPIRIN [Concomitant]
     Indication: CORONARY ARTERY DISEASE
     Dosage: UNK
     Dates: start: 20061106
  4. CLOPIDOGREL [Suspect]
     Indication: ACUTE CORONARY SYNDROME
     Dosage: UNK
     Dates: start: 20061106

REACTIONS (1)
  - GASTRIC POLYPS [None]
